FAERS Safety Report 14548399 (Version 1)
Quarter: 2018Q1

REPORT INFORMATION
  Report Type: Other
  Country: US (occurrence: US)
  Receive Date: 20180219
  Receipt Date: 20180219
  Transmission Date: 20180509
  Serious: Yes (Other)
  Sender: FDA-Public Use
  Company Number: US-EXELTIS USA INC.-2042254

PATIENT
  Age: 68 Year
  Sex: Male

DRUGS (4)
  1. LOVENOX [Concomitant]
     Active Substance: ENOXAPARIN SODIUM
  2. VANCOMYCIN [Suspect]
     Active Substance: VANCOMYCIN
  3. CEFEPIME [Concomitant]
     Active Substance: CEFEPIME HYDROCHLORIDE
  4. NUVESSA [Suspect]
     Active Substance: METRONIDAZOLE
     Indication: BRAIN ABSCESS

REACTIONS (1)
  - Thrombocytopenia [Unknown]
